FAERS Safety Report 16024122 (Version 1)
Quarter: 2019Q1

REPORT INFORMATION
  Report Type: Spontaneous
  Country: US (occurrence: US)
  Receive Date: 20190301
  Receipt Date: 20190301
  Transmission Date: 20190418
  Serious: No
  Sender: FDA-Public Use
  Company Number: US-IMPAX LABORATORIES, LLC-2018-IPXL-02641

PATIENT
  Sex: Female

DRUGS (3)
  1. EMVERM [Suspect]
     Active Substance: MEBENDAZOLE
     Indication: NEMATODIASIS
  2. EMVERM [Suspect]
     Active Substance: MEBENDAZOLE
     Indication: CESTODE INFECTION
     Dosage: 100 MG, EVERY 12HR FOR 3 DAYS, SEVERAL COURSES
     Route: 048
  3. EMVERM [Suspect]
     Active Substance: MEBENDAZOLE
     Indication: PRODUCT USE IN UNAPPROVED INDICATION

REACTIONS (6)
  - Groin pain [Unknown]
  - Disease recurrence [Not Recovered/Not Resolved]
  - Drug ineffective [Unknown]
  - Diarrhoea [Not Recovered/Not Resolved]
  - Drug ineffective for unapproved indication [Unknown]
  - Retching [Unknown]
